FAERS Safety Report 10897243 (Version 3)
Quarter: 2015Q2

REPORT INFORMATION
  Report Type: Spontaneous
  Country: US (occurrence: US)
  Receive Date: 20150309
  Receipt Date: 20150617
  Transmission Date: 20150821
  Serious: Yes (Other)
  Sender: FDA-Public Use
  Company Number: US-PFIZER INC-2015079767

PATIENT
  Age: 24 Year
  Sex: Male

DRUGS (1)
  1. IBRANCE [Suspect]
     Active Substance: PALBOCICLIB
     Indication: RHABDOMYOSARCOMA
     Dosage: 125 MG, DAILY
     Route: 048
     Dates: start: 20150220, end: 20150303

REACTIONS (3)
  - Product use issue [Unknown]
  - Scrotal oedema [Unknown]
  - Pneumonia [Unknown]
